FAERS Safety Report 6215508-6 (Version None)
Quarter: 2009Q2

REPORT INFORMATION
  Report Type: 
  Country: None (occurrence: None)
  Receive Date: 20090603
  Receipt Date: 20090519
  Transmission Date: 20091009
  Serious: Yes (Other)
  Sender: FDA-Public Use
  Company Number: TRP_06244_2009

PATIENT
  Age: 60 Year
  Sex: Female

DRUGS (3)
  1. RIBAVIRIN [Suspect]
     Indication: HEPATITIS C
     Dosage: (DF)
  2. PEGYLATED INTERFERON-ALFA [Suspect]
     Indication: HEPATITIS C
     Dosage: (DF)
  3. ANTIHYPERTENSIVES (UNKNOWN) [Concomitant]

REACTIONS (2)
  - RETINAL EXUDATES [None]
  - RETINAL VEIN OCCLUSION [None]
